FAERS Safety Report 5918333-6 (Version None)
Quarter: 2008Q4

REPORT INFORMATION
  Report Type: 
  Country: None (occurrence: None)
  Receive Date: 20081010
  Receipt Date: 20080929
  Transmission Date: 20090506
  Serious: Yes (Other)
  Sender: FDA-Public Use
  Company Number: 238936J08USA

PATIENT
  Age: 43 Year
  Sex: Female
  Weight: 79 kg

DRUGS (2)
  1. REBIF [Suspect]
     Indication: MULTIPLE SCLEROSIS
     Dosage: 44 MCG, 3 IN 1 WEEKS, SUBCUTANEOUS
     Route: 058
     Dates: start: 20080814
  2. ACETAMINOPHEN [Concomitant]

REACTIONS (2)
  - CHOLELITHIASIS [None]
  - VOMITING [None]
